FAERS Safety Report 20985863 (Version 1)
Quarter: 2022Q2

REPORT INFORMATION
  Report Type: Report from Study
  Country: US (occurrence: US)
  Receive Date: 20220621
  Receipt Date: 20220621
  Transmission Date: 20220720
  Serious: Yes (Life-Threatening, Hospitalization, Other)
  Sender: FDA-Public Use
  Company Number: US-BRISTOL-MYERS SQUIBB COMPANY-2022-032664

PATIENT
  Age: 73 Year
  Sex: Female
  Weight: 96.1 kg

DRUGS (3)
  1. IPILIMUMAB [Suspect]
     Active Substance: IPILIMUMAB
     Indication: Malignant melanoma
     Dosage: LAST ADMINISTRATION DATE 04-APR-2022
     Route: 065
  2. NIVOLUMAB [Suspect]
     Active Substance: NIVOLUMAB
     Indication: Malignant melanoma
     Dosage: LAST ADMINISTRATION DATE 04-APR-2022
     Route: 065
  3. GRANULOCYTE-MACROPHAGE COLONY-STIMULATING FACTOR [Suspect]
     Active Substance: GRANULOCYTE-MACROPHAGE COLONY-STIMULATING FACTOR
     Indication: Malignant melanoma
     Dosage: LAST ADMINISTERED DATE: 06-APR-2022
     Route: 065

REACTIONS (7)
  - Sepsis [Not Recovered/Not Resolved]
  - Encephalopathy [Recovered/Resolved]
  - Adrenal insufficiency [Unknown]
  - Acute kidney injury [Recovered/Resolved]
  - Fatigue [Unknown]
  - Hypotension [Unknown]
  - COVID-19 [Unknown]

NARRATIVE: CASE EVENT DATE: 20220419
